FAERS Safety Report 14091127 (Version 2)
Quarter: 2017Q4

REPORT INFORMATION
  Report Type: Spontaneous
  Country: US (occurrence: US)
  Receive Date: 20171016
  Receipt Date: 20171027
  Transmission Date: 20180321
  Serious: No
  Sender: FDA-Public Use
  Company Number: US-TEVA-815204ACC

PATIENT
  Age: 22 Year
  Sex: Female
  Weight: 68.1 kg

DRUGS (1)
  1. TAKE ACTION [Suspect]
     Active Substance: LEVONORGESTREL
     Indication: POST COITAL CONTRACEPTION
     Dates: start: 20171006, end: 20171006

REACTIONS (7)
  - Vomiting [Recovered/Resolved]
  - Dysmenorrhoea [Recovered/Resolved]
  - Vaginal discharge [Recovered/Resolved]
  - Vaginal discharge [Unknown]
  - Menstruation delayed [Unknown]
  - Abdominal distension [Unknown]
  - Polymenorrhoea [Unknown]

NARRATIVE: CASE EVENT DATE: 20171006
